FAERS Safety Report 6309311-6 (Version None)
Quarter: 2009Q3

REPORT INFORMATION
  Report Type: 
  Country: None (occurrence: None)
  Receive Date: 20090811
  Receipt Date: 20090728
  Transmission Date: 20100115
  Serious: Yes (Hospitalization)
  Sender: FDA-Public Use
  Company Number: 2009070026

PATIENT
  Age: 75 Year
  Sex: Male

DRUGS (10)
  1. TORSEMIDE [Suspect]
     Indication: CARDIAC FAILURE
     Dosage: 20 MG (20 MG, 1 IN 1 D)
  2. LITHIUM CARBONATE [Suspect]
     Indication: BIPOLAR DISORDER
     Dosage: 660 MG (330 MG, 2 IN 1 D)
  3. ENALAPRIL MALEATE [Suspect]
     Indication: CARDIAC FAILURE
     Dosage: 20 MG (20 MG, 1 IN 1 D)
  4. ASPIRIN [Suspect]
     Dosage: 100 MG (100 MG, 1 IN 1 D)
  5. METFORMIN HCL [Concomitant]
  6. VENLAFAXINE HCL [Concomitant]
  7. PREGABALIN (PREGABALIN) [Concomitant]
  8. TAMSULOSIN HCL [Concomitant]
  9. MACROGOL (MACROGOL) [Concomitant]
  10. BUPROPION HCL [Concomitant]

REACTIONS (11)
  - ANTIPSYCHOTIC DRUG LEVEL INCREASED [None]
  - DIABETES INSIPIDUS [None]
  - DISTURBANCE IN ATTENTION [None]
  - EYE MOVEMENT DISORDER [None]
  - HYPERTONIA [None]
  - HYPOTENSION [None]
  - MYOCLONUS [None]
  - NEUROLOGICAL SYMPTOM [None]
  - PNEUMONIA [None]
  - RENAL FAILURE ACUTE [None]
  - THERAPEUTIC AGENT TOXICITY [None]
